FAERS Safety Report 13406737 (Version 2)
Quarter: 2017Q2

REPORT INFORMATION
  Report Type: Spontaneous
  Country: US (occurrence: US)
  Receive Date: 20170405
  Receipt Date: 20170505
  Transmission Date: 20170830
  Serious: Yes (Hospitalization, Other)
  Sender: FDA-Public Use
  Company Number: GXBR2017US001272

PATIENT
  Age: 59 Year
  Sex: Female
  Weight: 119.27 kg

DRUGS (3)
  1. AMIODARONE HYDROCHLORIDE. [Suspect]
     Active Substance: AMIODARONE HYDROCHLORIDE
     Dosage: UNK MG, INTRAVENOUS
     Route: 042
     Dates: start: 20160817
  2. AMIODARONE HYDROCHLORIDE. [Suspect]
     Active Substance: AMIODARONE HYDROCHLORIDE
     Indication: ATRIAL FIBRILLATION
     Dosage: 400 MG, BID
     Route: 048
     Dates: end: 20161101
  3. CARDIZEM [Suspect]
     Active Substance: DILTIAZEM HYDROCHLORIDE
     Indication: HEART RATE INCREASED
     Dosage: UNK DF, UNK
     Route: 048
     Dates: end: 201611

REACTIONS (10)
  - Pruritus generalised [Recovered/Resolved]
  - Formication [Recovered/Resolved]
  - Thyroid function test abnormal [Not Recovered/Not Resolved]
  - Weight increased [Not Recovered/Not Resolved]
  - Dizziness [Recovered/Resolved]
  - Drug ineffective [Recovered/Resolved]
  - Insomnia [Recovered/Resolved]
  - Malaise [Recovered/Resolved]
  - Atrial flutter [Recovered/Resolved]
  - Iodine uptake abnormal [Not Recovered/Not Resolved]

NARRATIVE: CASE EVENT DATE: 201608
